FAERS Safety Report 6530812-X (Version None)
Quarter: 2010Q1

REPORT INFORMATION
  Report Type: 
  Country: None (occurrence: None)
  Receive Date: 20100108
  Receipt Date: 20090311
  Transmission Date: 20100710
  Serious: No
  Sender: FDA-Public Use
  Company Number: A0772811A

PATIENT
  Age: 63 Year
  Sex: Male

DRUGS (14)
  1. LOVAZA [Suspect]
     Dosage: 2CAP TWICE PER DAY
     Route: 048
     Dates: start: 20080901
  2. GROWTH HORMONE [Concomitant]
  3. SYNTHROID [Concomitant]
  4. ZETIA [Concomitant]
  5. AVACOR [Concomitant]
  6. UNKNOWN MEDICATION [Concomitant]
  7. BACTROBAN [Concomitant]
  8. ANUCORT [Concomitant]
  9. TESTOSTERONE [Concomitant]
  10. VITAMINS [Concomitant]
  11. CALCIUM [Concomitant]
  12. EYE DROP [Concomitant]
  13. ACIPHEX [Concomitant]
  14. PROVIGIL [Concomitant]

REACTIONS (1)
  - GASTRIC DISORDER [None]
